FAERS Safety Report 8103449-9 (Version None)
Quarter: 2012Q1

REPORT INFORMATION
  Report Type: 
  Country: None (occurrence: None)
  Receive Date: 20120201
  Receipt Date: 20120120
  Transmission Date: 20120608
  Serious: Yes (Hospitalization, Other)
  Sender: FDA-Public Use
  Company Number: PHHY2012FR004728

PATIENT
  Sex: Female

DRUGS (9)
  1. BISOPROLOL FUMARATE [Suspect]
     Indication: HYPERTENSION
     Dosage: 2 DF, QD
     Dates: start: 20110401, end: 20111221
  2. CORDARONE [Suspect]
     Indication: ARRHYTHMIA
     Dosage: 1 DF
     Dates: start: 20111211, end: 20111219
  3. ESIDRIX [Suspect]
     Indication: HYPERTENSION
     Dosage: 1 DF, DAILY
     Dates: end: 20111220
  4. PREVISCAN [Concomitant]
     Dosage: 5 MG, QD
     Dates: start: 20110401
  5. VALSARTAN [Suspect]
     Indication: HYPERTENSION
     Dosage: 1 DF
  6. VALSARTAN [Suspect]
     Dosage: 80 MG DAILY
     Dates: start: 20111223
  7. CORDARONE [Suspect]
     Dates: start: 20111223
  8. ESOMEPRAZOLE SODIUM [Concomitant]
     Indication: GASTROOESOPHAGEAL REFLUX DISEASE
     Dosage: 1 DF
  9. ATORVASTATIN [Concomitant]
     Dosage: 1 DF

REACTIONS (10)
  - HEADACHE [None]
  - MALAISE [None]
  - BUNDLE BRANCH BLOCK RIGHT [None]
  - DIZZINESS [None]
  - ARRHYTHMIA [None]
  - PRESYNCOPE [None]
  - MIOSIS [None]
  - VENTRICULAR EXTRASYSTOLES [None]
  - VISION BLURRED [None]
  - ELECTROCARDIOGRAM ABNORMAL [None]
